FAERS Safety Report 16014534 (Version 1)
Quarter: 2019Q1

REPORT INFORMATION
  Report Type: Report from Study
  Country: DE (occurrence: DE)
  Receive Date: 20190227
  Receipt Date: 20190227
  Transmission Date: 20190418
  Serious: Yes (Other)
  Sender: FDA-Public Use
  Company Number: DE-GILEAD-2015-0172350

PATIENT
  Age: 50 Year
  Sex: Female
  Weight: 129 kg

DRUGS (22)
  1. SOFOSBUVIR [Suspect]
     Active Substance: SOFOSBUVIR
     Indication: CHRONIC HEPATITIS C
     Dosage: 400 MG, QD
     Route: 048
     Dates: start: 20141128, end: 20150215
  2. OLYSIO [Concomitant]
     Active Substance: SIMEPREVIR
     Indication: CHRONIC HEPATITIS C
     Dosage: 150 MG, QD
     Route: 048
     Dates: start: 20141128, end: 20150215
  3. HUMATIN [Concomitant]
     Active Substance: PAROMOMYCIN SULFATE
  4. RAMIPRIL. [Concomitant]
     Active Substance: RAMIPRIL
  5. TORASEMID [Concomitant]
     Active Substance: TORSEMIDE
  6. TACROLIMUS. [Concomitant]
     Active Substance: TACROLIMUS
  7. TAPENTADOL [Concomitant]
     Active Substance: TAPENTADOL
  8. AMITRIPTYLIN [Concomitant]
     Active Substance: AMITRIPTYLINE
  9. IBUPROFEN. [Concomitant]
     Active Substance: IBUPROFEN
  10. CETIRIZIN [Concomitant]
     Active Substance: CETIRIZINE HYDROCHLORIDE
     Dosage: UNK
     Dates: start: 20141223
  11. CARVEDILOL. [Concomitant]
     Active Substance: CARVEDILOL
  12. BERODUAL INHALATION SOLUTION [Concomitant]
  13. L-THYROXIN 1A PHARMA [Concomitant]
  14. BERODUAL [Concomitant]
     Active Substance: FENOTEROL HYDROBROMIDE\IPRATROPIUM BROMIDE
  15. LYRICA [Concomitant]
     Active Substance: PREGABALIN
  16. SPIRONOLACTON [Concomitant]
     Active Substance: SPIRONOLACTONE
     Dosage: UNK
     Dates: start: 20141223
  17. PIPAMPERON [Concomitant]
     Active Substance: PIPAMPERONE HYDROCHLORIDE
  18. IMODIUM [Concomitant]
     Active Substance: LOPERAMIDE HYDROCHLORIDE
  19. SERTRALINE [Concomitant]
     Active Substance: SERTRALINE HYDROCHLORIDE
  20. PANTOPRAZOLE [Concomitant]
     Active Substance: PANTOPRAZOLE
     Dosage: 40 MG
     Dates: start: 20141223
  21. HEPA MERZ [Concomitant]
     Dosage: UNK
     Dates: start: 20141223
  22. EUTHYROX [Concomitant]
     Active Substance: LEVOTHYROXINE SODIUM

REACTIONS (1)
  - Liver transplant [Recovered/Resolved]

NARRATIVE: CASE EVENT DATE: 20180905
